FAERS Safety Report 8432394-4 (Version None)
Quarter: 2012Q2

REPORT INFORMATION
  Report Type: 
  Country: None (occurrence: None)
  Receive Date: 20120606
  Receipt Date: 20120523
  Transmission Date: 20120825
  Serious: Yes (Hospitalization)
  Sender: FDA-Public Use
  Company Number: 2012-0125

PATIENT
  Age: 55 Year
  Sex: Male

DRUGS (2)
  1. SOMATULINE DEPOT [Suspect]
     Indication: POST GASTRIC SURGERY SYNDROME
     Dosage: 120 MG (120 MG, 1 IN 28 D), INTRAMUSCULAR
     Route: 030
  2. SOMATULINE DEPOT [Suspect]

REACTIONS (4)
  - EMOTIONAL DISTRESS [None]
  - ARTERIOSPASM CORONARY [None]
  - CHEST PAIN [None]
  - OFF LABEL USE [None]
